FAERS Safety Report 11453321 (Version 1)
Quarter: 2015Q3

REPORT INFORMATION
  Report Type: Spontaneous
  Country: US (occurrence: US)
  Receive Date: 20150831
  Receipt Date: 20150831
  Transmission Date: 20151125
  Serious: No
  Sender: FDA-Public Use
  Company Number: US-ELI_LILLY_AND_COMPANY-US200911001256

PATIENT
  Sex: Female

DRUGS (4)
  1. CYMBALTA [Suspect]
     Active Substance: DULOXETINE HYDROCHLORIDE
     Dosage: 20 MG, DAILY (1/D)
     Route: 048
     Dates: start: 2008, end: 2009
  2. CYMBALTA [Suspect]
     Active Substance: DULOXETINE HYDROCHLORIDE
     Dosage: UNK, DAILY (1/D)
     Route: 048
     Dates: start: 2009, end: 200910
  3. OMEPRAZOLE. [Concomitant]
     Active Substance: OMEPRAZOLE
  4. CYMBALTA [Suspect]
     Active Substance: DULOXETINE HYDROCHLORIDE
     Indication: URINARY INCONTINENCE
     Dosage: 30 MG, DAILY (1/D)
     Route: 048
     Dates: start: 2008, end: 2008

REACTIONS (11)
  - Loss of libido [Unknown]
  - Intentional product misuse [Recovered/Resolved]
  - Flat affect [Unknown]
  - Headache [Not Recovered/Not Resolved]
  - Fatigue [Not Recovered/Not Resolved]
  - Feeling abnormal [Unknown]
  - Nervousness [Not Recovered/Not Resolved]
  - Agitation [Not Recovered/Not Resolved]
  - Coordination abnormal [Recovered/Resolved]
  - Apathy [Recovered/Resolved]
  - Pain [Not Recovered/Not Resolved]

NARRATIVE: CASE EVENT DATE: 2008
